FAERS Safety Report 9476238 (Version 1)
Quarter: 2013Q3

REPORT INFORMATION
  Report Type: Spontaneous
  Country: US (occurrence: None)
  Receive Date: 20130823
  Receipt Date: 20130823
  Transmission Date: 20140515
  Serious: Yes (Hospitalization)
  Sender: FDA-Public Use
  Company Number: None

PATIENT
  Age: 97 Year
  Sex: Male
  Weight: 70.5 kg

DRUGS (1)
  1. CEPHALEXIN [Suspect]
     Indication: WOUND INFECTION
     Dosage: 500 MG QID PO
     Dates: start: 20130514, end: 20130624

REACTIONS (3)
  - Diarrhoea [None]
  - Abdominal pain [None]
  - Clostridium difficile infection [None]
